FAERS Safety Report 5868534-0 (Version None)
Quarter: 2008Q3

REPORT INFORMATION
  Report Type: 
  Country: None (occurrence: None)
  Receive Date: 20080903
  Receipt Date: 20080826
  Transmission Date: 20090109
  Serious: Yes (Other)
  Sender: FDA-Public Use
  Company Number: US-ROCHE-582838

PATIENT
  Age: 79 Year
  Sex: Female

DRUGS (4)
  1. BONIVA [Suspect]
     Indication: DRUG USE FOR UNKNOWN INDICATION
     Route: 048
     Dates: start: 20070801, end: 20080601
  2. BONIVA [Suspect]
     Route: 048
     Dates: start: 20080801
  3. PLAVIX [Concomitant]
  4. AMBIEN [Concomitant]

REACTIONS (3)
  - BACK PAIN [None]
  - OSTEOPOROSIS [None]
  - TRANSIENT ISCHAEMIC ATTACK [None]
